FAERS Safety Report 25166598 (Version 1)
Quarter: 2025Q2

REPORT INFORMATION
  Report Type: Spontaneous
  Country: GR (occurrence: GR)
  Receive Date: 20250407
  Receipt Date: 20250407
  Transmission Date: 20250717
  Serious: Yes (Hospitalization)
  Sender: MACLEODS
  Company Number: GR-MLMSERVICE-20250321-PI453647-00176-1

PATIENT

DRUGS (1)
  1. HYDROCHLOROTHIAZIDE\IRBESARTAN [Suspect]
     Active Substance: HYDROCHLOROTHIAZIDE\IRBESARTAN
     Indication: Hypertension
     Dosage: 150/12.5MG
     Route: 065

REACTIONS (2)
  - Electrocardiogram abnormal [Recovered/Resolved]
  - Hyponatraemia [Recovered/Resolved]
